FAERS Safety Report 19658340 (Version 2)
Quarter: 2021Q3

REPORT INFORMATION
  Report Type: Report from Study
  Country: None (occurrence: IL)
  Receive Date: 20210805
  Receipt Date: 20210913
  Transmission Date: 20211014
  Serious: Yes (Death)
  Sender: FDA-Public Use
  Company Number: IL-ABBVIE-21K-082-4024111-00

PATIENT
  Age: 83 Year
  Sex: Male
  Weight: 70 kg

DRUGS (13)
  1. VENETOCLAX. [Suspect]
     Active Substance: VENETOCLAX
     Dosage: 400 MG, RAMP UP. DISCONTINUATION DUE TO DEATH OF PATIENT
     Route: 048
     Dates: start: 20210316, end: 20210727
  2. AZACITIDINE. [Suspect]
     Active Substance: AZACITIDINE
     Dosage: CYCLE 2, 130 MG
     Route: 065
     Dates: start: 20210411, end: 20210420
  3. BISOPROLOL [Concomitant]
     Active Substance: BISOPROLOL
     Indication: PROPHYLAXIS
     Dates: start: 20160601
  4. ALLORIL [Concomitant]
     Active Substance: ALLOPURINOL
     Indication: HYPOURICAEMIA
     Dates: start: 20210321
  5. VENETOCLAX. [Suspect]
     Active Substance: VENETOCLAX
     Indication: ACUTE MYELOID LEUKAEMIA
     Dosage: 100 MG, RAMP UP
     Route: 048
     Dates: start: 20210314, end: 20210314
  6. AZACITIDINE. [Suspect]
     Active Substance: AZACITIDINE
     Dosage: CYCLE 3, 130 MG
     Route: 065
     Dates: start: 20210516, end: 20210525
  7. AZACITIDINE. [Suspect]
     Active Substance: AZACITIDINE
     Dosage: CYCLE 4, 130 MG
     Route: 065
     Dates: start: 20210613, end: 20210621
  8. VENETOCLAX. [Suspect]
     Active Substance: VENETOCLAX
     Dosage: 200 MG, RAMP UP
     Route: 048
     Dates: start: 20210315, end: 20210315
  9. AZACITIDINE. [Suspect]
     Active Substance: AZACITIDINE
     Indication: ACUTE MYELOID LEUKAEMIA
     Dosage: CYCLE 1, 130 MG
     Route: 042
     Dates: start: 20210314, end: 20210320
  10. NEXIUM [Concomitant]
     Active Substance: ESOMEPRAZOLE MAGNESIUM
     Indication: PROPHYLAXIS
     Dates: start: 20160524
  11. VASODIP COMBO [Concomitant]
     Indication: PROPHYLAXIS
     Dates: start: 20141209, end: 20210321
  12. PFIZER?BIONTECH COVID?19 VACCINE [Concomitant]
     Active Substance: TOZINAMERAN
     Indication: COVID-19 IMMUNISATION
     Dosage: FIRST DOSE
     Route: 030
     Dates: start: 20201230, end: 20201230
  13. PFIZER?BIONTECH COVID?19 VACCINE [Concomitant]
     Active Substance: TOZINAMERAN
     Dosage: SECOND DOSE
     Route: 030
     Dates: start: 20210120, end: 20210120

REACTIONS (1)
  - Pneumonia [Fatal]

NARRATIVE: CASE EVENT DATE: 20210727
